FAERS Safety Report 6382065-3 (Version None)
Quarter: 2009Q3

REPORT INFORMATION
  Report Type: 
  Country: None (occurrence: None)
  Receive Date: 20090930
  Receipt Date: 20090918
  Transmission Date: 20100115
  Serious: Yes (Other)
  Sender: FDA-Public Use
  Company Number: PHHY2009JP36928

PATIENT
  Sex: Female

DRUGS (3)
  1. NEORAL [Suspect]
     Indication: MYASTHENIA GRAVIS
     Dosage: 350 MG/DAY
     Route: 048
     Dates: start: 20080526, end: 20080613
  2. NEORAL [Suspect]
     Dosage: 100 MG/DAY
     Route: 048
     Dates: start: 20080623, end: 20080715
  3. MYTELASE [Concomitant]
     Indication: MYASTHENIA GRAVIS
     Dosage: 30 MG, UNK
     Route: 048
     Dates: start: 20080426

REACTIONS (3)
  - BLOOD BILIRUBIN INCREASED [None]
  - ECCHYMOSIS [None]
  - PAIN IN EXTREMITY [None]
